FAERS Safety Report 24020736 (Version 1)
Quarter: 2024Q2

REPORT INFORMATION
  Report Type: Spontaneous
  Country: US (occurrence: US)
  Receive Date: 20240627
  Receipt Date: 20240627
  Transmission Date: 20240715
  Serious: No
  Sender: FDA-Public Use
  Company Number: US-PFIZER INC-PV202400083798

PATIENT
  Sex: Female

DRUGS (4)
  1. NURTEC ODT [Suspect]
     Active Substance: RIMEGEPANT SULFATE
     Indication: Migraine prophylaxis
     Dosage: 75 MG EVERY 2 DAYS
     Dates: start: 202402
  2. BOTOX [Suspect]
     Active Substance: BOTULINUM TOXIN TYPE A\ONABOTULINUMTOXINA
     Indication: Migraine prophylaxis
     Dosage: UNK, EVERY 3 MONTHS (EVERY THREE MONTH, AS NECESSARY)
     Dates: start: 2016, end: 2016
  3. ZOLMITRIPTAN [Concomitant]
     Active Substance: ZOLMITRIPTAN
     Indication: Migraine
     Dosage: 5 MG
     Dates: start: 2016
  4. TYLENOL EXTRA STRENGTH [Concomitant]
     Active Substance: ACETAMINOPHEN
     Indication: Migraine
     Dosage: 500-1000 MGO

REACTIONS (3)
  - Migraine [Unknown]
  - Gestational hypertension [Unknown]
  - Maternal exposure timing unspecified [Unknown]
